FAERS Safety Report 8890669 (Version 1)
Quarter: 2012Q4

REPORT INFORMATION
  Report Type: Report from Study
  Country: JP (occurrence: JP)
  Receive Date: 20121107
  Receipt Date: 20121107
  Transmission Date: 20130627
  Serious: Yes (Other)
  Sender: FDA-Public Use
  Company Number: JP-VERTEX PHARMACEUTICAL INC.-2012-024079

PATIENT
  Age: 63 Year
  Sex: Male

DRUGS (8)
  1. VX-950 [Suspect]
     Indication: CHRONIC HEPATITIS C
     Dosage: 1500 mg, qd
     Route: 048
     Dates: start: 20120425, end: 20120718
  2. PEGINTRON                          /01543001/ [Suspect]
     Indication: CHRONIC HEPATITIS C
     Dosage: 1.5 ?g/kg, UNK
     Route: 058
     Dates: start: 20101202, end: 20120524
  3. PEGINTRON                          /01543001/ [Suspect]
     Dosage: 1.0 ?g/kg, UNK
     Route: 058
     Dates: start: 20120531, end: 20120531
  4. PEGINTRON                          /01543001/ [Suspect]
     Dosage: 1.5 ?g/kg, UNK
     Route: 058
     Dates: start: 20120607, end: 20120823
  5. PEGINTRON                          /01543001/ [Suspect]
     Dosage: 1.0 ?g/kg, UNK
     Route: 058
     Dates: start: 20120830, end: 20120830
  6. PEGINTRON                          /01543001/ [Suspect]
     Dosage: 1.5 ?g/kg, UNK
     Route: 058
     Dates: start: 20120906, end: 20121004
  7. RIBAVIRIN [Concomitant]
     Dosage: 200 mg, qd
     Route: 048
     Dates: start: 20101202, end: 20121011
  8. FERRUM                             /00023505/ [Concomitant]
     Dosage: 100 mg, qd
     Route: 048
     Dates: end: 20120606

REACTIONS (4)
  - Neutrophil count decreased [Recovered/Resolved]
  - Hyperuricaemia [None]
  - Therapeutic response decreased [None]
  - Platelet count decreased [None]
